FAERS Safety Report 18581090 (Version 4)
Quarter: 2021Q1

REPORT INFORMATION
  Report Type: Report from Study
  Country: US (occurrence: US)
  Receive Date: 20201204
  Receipt Date: 20210210
  Transmission Date: 20210419
  Serious: Yes (Hospitalization, Other)
  Sender: FDA-Public Use
  Company Number: US-B.I. PHARMACEUTICALS,INC./RIDGEFIELD-2020-BI-056931

PATIENT
  Age: 81 Year
  Sex: Female

DRUGS (1)
  1. OFEV [Suspect]
     Active Substance: NINTEDANIB
     Indication: IDIOPATHIC PULMONARY FIBROSIS
     Dosage: OFEV DOSE 300MG DAILY
     Route: 048
     Dates: start: 20190627

REACTIONS (16)
  - Hypertension [Unknown]
  - Vomiting [Unknown]
  - Pneumonia [Unknown]
  - Abdominal discomfort [Unknown]
  - Idiopathic pulmonary fibrosis [Unknown]
  - Dizziness [Unknown]
  - Headache [Unknown]
  - Dysphonia [Unknown]
  - Depression [Unknown]
  - Memory impairment [Unknown]
  - Nausea [Unknown]
  - Pneumonia [Unknown]
  - Aphonia [Unknown]
  - Dyspnoea [Unknown]
  - Haematochezia [Unknown]
  - Feeling abnormal [Unknown]

NARRATIVE: CASE EVENT DATE: 20201014
